FAERS Safety Report 5319469-3 (Version None)
Quarter: 2007Q2

REPORT INFORMATION
  Report Type: 
  Country: None (occurrence: None)
  Receive Date: 20070508
  Receipt Date: 20070426
  Transmission Date: 20071010
  Serious: Yes (Hospitalization)
  Sender: FDA-Public Use
  Company Number: US-PFIZER INC-2007033580

PATIENT
  Sex: Female
  Weight: 91.4 kg

DRUGS (7)
  1. ZYVOX [Suspect]
     Indication: URINARY TRACT INFECTION
     Dosage: DAILY DOSE:600MG
  2. ARGATROBAN [Interacting]
     Indication: HEPARIN-INDUCED THROMBOCYTOPENIA
     Dosage: TEXT:2 MCG/KG/MIN-FREQ:WITH FREQUENT TITRATION
     Route: 042
     Dates: start: 20070325, end: 20070331
  3. PEPCID [Concomitant]
  4. WARFARIN SODIUM [Concomitant]
  5. IMMUNOGLOBULINS [Concomitant]
     Route: 042
     Dates: start: 20070322, end: 20070324
  6. SOLU-MEDROL [Concomitant]
  7. FRAGMIN [Concomitant]
     Dates: start: 20070306, end: 20070325

REACTIONS (2)
  - COAGULATION TIME ABNORMAL [None]
  - DRUG INTERACTION [None]
